FAERS Safety Report 25953071 (Version 2)
Quarter: 2025Q4

REPORT INFORMATION
  Report Type: Spontaneous
  Country: US (occurrence: US)
  Receive Date: 20251023
  Receipt Date: 20251124
  Transmission Date: 20260117
  Serious: Yes (Other)
  Sender: FERRING
  Company Number: US-FERRINGPH-2025FE06056

PATIENT

DRUGS (1)
  1. ADSTILADRIN [Suspect]
     Active Substance: NADOFARAGENE FIRADENOVEC-VNCG
     Indication: Product used for unknown indication
     Dosage: 75 ML
     Route: 043
     Dates: start: 20250808

REACTIONS (2)
  - Bladder neoplasm [Not Recovered/Not Resolved]
  - Drug ineffective [Unknown]

NARRATIVE: CASE EVENT DATE: 20250801
